FAERS Safety Report 7884999-7 (Version None)
Quarter: 2011Q4

REPORT INFORMATION
  Report Type: 
  Country: None (occurrence: None)
  Receive Date: 20111102
  Receipt Date: 20111028
  Transmission Date: 20120403
  Serious: Yes (Other)
  Sender: FDA-Public Use
  Company Number: CO-PFIZER INC-2011266199

PATIENT
  Age: 63 Year
  Sex: Female
  Weight: 61 kg

DRUGS (5)
  1. RAPAMUNE [Suspect]
     Indication: PROPHYLAXIS AGAINST TRANSPLANT REJECTION
     Dosage: 3 MG, 1X/DAY
     Dates: start: 20110101
  2. PREDNISOLONE [Concomitant]
     Indication: RENAL TRANSPLANT
     Dosage: 5 MG, 1X/DAY
  3. LEVOTHYROXINE [Concomitant]
     Indication: RENAL TRANSPLANT
     Dosage: UNK
  4. OMEPRAZOLE [Concomitant]
     Indication: RENAL TRANSPLANT
     Dosage: UNK
  5. MYCOPHENOLATE MOFETIL [Concomitant]
     Indication: RENAL TRANSPLANT
     Dosage: UNK

REACTIONS (3)
  - WEIGHT DECREASED [None]
  - OEDEMA [None]
  - DYSGEUSIA [None]
